FAERS Safety Report 15467629 (Version 2)
Quarter: 2019Q2

REPORT INFORMATION
  Report Type: Spontaneous
  Country: US (occurrence: US)
  Receive Date: 20181005
  Receipt Date: 20190405
  Transmission Date: 20190711
  Serious: Yes (Other)
  Sender: FDA-Public Use
  Company Number: US-HIKMA PHARMACEUTICALS USA INC.-US-H14001-18-07609

PATIENT

DRUGS (3)
  1. OXYTOCIN. [Suspect]
     Active Substance: OXYTOCIN
     Route: 042
  2. OXYTOCIN. [Suspect]
     Active Substance: OXYTOCIN
     Indication: LABOUR INDUCTION
     Route: 042
  3. OXYTOCIN. [Suspect]
     Active Substance: OXYTOCIN
     Route: 042

REACTIONS (2)
  - Foetal exposure during delivery [Recovered/Resolved]
  - Hypoxic-ischaemic encephalopathy [Unknown]
